FAERS Safety Report 15117489 (Version 3)
Quarter: 2020Q3

REPORT INFORMATION
  Report Type: Spontaneous
  Country: BR (occurrence: BR)
  Receive Date: 20180706
  Receipt Date: 20200722
  Transmission Date: 20201102
  Serious: Yes (Hospitalization)
  Sender: FDA-Public Use
  Company Number: PHHY2018BR036884

PATIENT
  Age: 63 Year
  Sex: Female
  Weight: 57 kg

DRUGS (8)
  1. ALPRAZOLAM. [Suspect]
     Active Substance: ALPRAZOLAM
     Indication: PRODUCT USED FOR UNKNOWN INDICATION
     Dosage: UNK
     Route: 065
  2. FLUTAX [Suspect]
     Active Substance: FLUTAMIDE
     Indication: PRODUCT USED FOR UNKNOWN INDICATION
     Route: 065
  3. VALDOXAN [Concomitant]
     Active Substance: AGOMELATINE
     Indication: PRODUCT USED FOR UNKNOWN INDICATION
     Dosage: UNK
     Route: 065
  4. FLUXTAR [Concomitant]
     Indication: PRODUCT USED FOR UNKNOWN INDICATION
     Dosage: UNK
     Route: 065
  5. OLCADIL [Suspect]
     Active Substance: CLOXAZOLAM
     Indication: IRRITABILITY
  6. OLCADIL [Suspect]
     Active Substance: CLOXAZOLAM
     Indication: TREMOR
  7. DIAZEPAM. [Suspect]
     Active Substance: DIAZEPAM
     Indication: PRODUCT USED FOR UNKNOWN INDICATION
     Dosage: UNK
     Route: 065
  8. OLCADIL [Suspect]
     Active Substance: CLOXAZOLAM
     Indication: ANXIETY
     Dosage: 2 TABLET/1 TABLET, QD,STARTED 33 YEARS AGO
     Route: 048
     Dates: end: 201805

REACTIONS (6)
  - Hallucination [Not Recovered/Not Resolved]
  - Tremor [Not Recovered/Not Resolved]
  - Anxiety [Not Recovered/Not Resolved]
  - Feeling abnormal [Not Recovered/Not Resolved]
  - Drug withdrawal syndrome [Unknown]
  - Crying [Unknown]

NARRATIVE: CASE EVENT DATE: 20200713
